FAERS Safety Report 10459302 (Version 1)
Quarter: 2014Q3

REPORT INFORMATION
  Report Type: Spontaneous
  Country: FR (occurrence: FR)
  Receive Date: 20140917
  Receipt Date: 20140917
  Transmission Date: 20150326
  Serious: Yes (Hospitalization)
  Sender: FDA-Public Use
  Company Number: FR-SA-2014SA125488

PATIENT
  Age: 86 Year
  Sex: Female

DRUGS (16)
  1. BRICANYL [Concomitant]
     Active Substance: TERBUTALINE SULFATE
     Dates: start: 201408
  2. TILDIEM [Concomitant]
     Active Substance: DILTIAZEM HYDROCHLORIDE
     Dates: start: 201408
  3. SERETIDE [Concomitant]
     Active Substance: FLUTICASONE FUROATE\SALMETEROL XINAFOATE
     Dosage: DOSE: 500/50 MCG/DOSE, POWDER FOR INHALATION, UNIDOSE
     Route: 055
  4. SPIRIVA [Concomitant]
     Active Substance: TIOTROPIUM BROMIDE MONOHYDRATE
     Dates: end: 201408
  5. ATROVENT [Concomitant]
     Active Substance: IPRATROPIUM BROMIDE
  6. APROVEL [Suspect]
     Active Substance: IRBESARTAN
     Route: 048
     Dates: start: 201408, end: 20140820
  7. LOVENOX [Concomitant]
     Active Substance: ENOXAPARIN SODIUM
     Indication: ATRIAL FIBRILLATION
     Dates: start: 201408
  8. LASILIX [Suspect]
     Active Substance: FUROSEMIDE
     Route: 048
     Dates: start: 201408, end: 20140820
  9. DIGOXINE [Concomitant]
     Active Substance: DIGOXIN
     Indication: ATRIAL FIBRILLATION
     Dates: start: 201408
  10. SEVIKAR [Concomitant]
     Active Substance: AMLODIPINE BESYLATE\OLMESARTAN MEDOXOMIL
  11. CEPHALOSPORINS AND RELATED SUBSTANCES [Concomitant]
     Active Substance: UNSPECIFIED INGREDIENT
     Dates: start: 201408, end: 20140819
  12. KARDEGIC [Concomitant]
     Active Substance: ASPIRIN LYSINE
  13. AIROMIR [Concomitant]
     Active Substance: ALBUTEROL SULFATE
  14. OMNIPAQUE [Suspect]
     Active Substance: IOHEXOL
     Route: 048
     Dates: start: 20140820, end: 20140820
  15. PREVISCAN [Concomitant]
     Active Substance: FLUINDIONE
     Indication: ATRIAL FIBRILLATION
  16. SOLU-MEDROL [Concomitant]
     Active Substance: METHYLPREDNISOLONE SODIUM SUCCINATE

REACTIONS (2)
  - Hyponatraemia [Recovered/Resolved]
  - Renal failure [Recovered/Resolved]

NARRATIVE: CASE EVENT DATE: 201408
